FAERS Safety Report 5034780-1 (Version None)
Quarter: 2006Q2

REPORT INFORMATION
  Report Type: 
  Country: None (occurrence: None)
  Receive Date: 20060509
  Receipt Date: 20060111
  Transmission Date: 20061013
  Serious: Yes (Other)
  Sender: FDA-Public Use
  Company Number: US200601001791

PATIENT
  Age: 43 Year
  Sex: Male

DRUGS (4)
  1. PROZAC [Suspect]
     Dates: start: 20030101
  2. LEXAPRO /USA/(ESCITALOPRAM) [Concomitant]
  3. SEROQUEL [Concomitant]
  4. KLONOPIN [Concomitant]

REACTIONS (3)
  - AGGRESSION [None]
  - AMNESIA [None]
  - INTENTIONAL SELF-INJURY [None]
